FAERS Safety Report 18517457 (Version 1)
Quarter: 2020Q4

REPORT INFORMATION
  Report Type: Spontaneous
  Country: CN (occurrence: CN)
  Receive Date: 20201118
  Receipt Date: 20201118
  Transmission Date: 20210114
  Serious: Yes (Other)
  Sender: FDA-Public Use
  Company Number: CN-PFIZER INC-2020451539

PATIENT
  Age: 49 Year
  Sex: Female
  Weight: 46 kg

DRUGS (1)
  1. VORICONAZOLE. [Suspect]
     Active Substance: VORICONAZOLE
     Indication: ANTIFUNGAL TREATMENT
     Dosage: 1 DF, 1X/DAY
     Route: 048
     Dates: start: 20201029, end: 20201029

REACTIONS (3)
  - Epilepsy [Recovering/Resolving]
  - Dizziness [Recovering/Resolving]
  - Seizure [Recovering/Resolving]

NARRATIVE: CASE EVENT DATE: 20201105
